FAERS Safety Report 22239493 (Version 3)
Quarter: 2023Q4

REPORT INFORMATION
  Report Type: Spontaneous
  Country: US (occurrence: US)
  Receive Date: 20230421
  Receipt Date: 20231020
  Transmission Date: 20240110
  Serious: Yes (Hospitalization, Other)
  Sender: FDA-Public Use
  Company Number: US-PFIZER INC-202300159792

PATIENT
  Age: 86 Year
  Sex: Female
  Weight: 51.71 kg

DRUGS (1)
  1. VYNDAMAX [Suspect]
     Active Substance: TAFAMIDIS
     Indication: Cardiac disorder
     Dosage: 61 MG, 1X/DAY
     Dates: start: 2022

REACTIONS (7)
  - Hiatus hernia [Unknown]
  - Cardiac disorder [Unknown]
  - Dyspnoea [Unknown]
  - Lung disorder [Unknown]
  - Leukaemia [Not Recovered/Not Resolved]
  - Product dose omission issue [Unknown]
  - Aphonia [Unknown]

NARRATIVE: CASE EVENT DATE: 20230201
